FAERS Safety Report 20837877 (Version 1)
Quarter: 2022Q2

REPORT INFORMATION
  Report Type: Spontaneous
  Country: US (occurrence: US)
  Receive Date: 20220517
  Receipt Date: 20220517
  Transmission Date: 20220721
  Serious: No
  Sender: FDA-Public Use
  Company Number: US-ALLERGAN-2127024US

PATIENT
  Age: 28 Year
  Sex: Female

DRUGS (1)
  1. KYBELLA [Suspect]
     Active Substance: DEOXYCHOLIC ACID
     Indication: Fat tissue increased
     Dosage: UNK, SINGLE
     Dates: start: 20210727, end: 20210727

REACTIONS (5)
  - Aphasia [Not Recovered/Not Resolved]
  - Facial paresis [Not Recovered/Not Resolved]
  - Dysphagia [Not Recovered/Not Resolved]
  - Paraesthesia oral [Unknown]
  - Injection site pain [Unknown]

NARRATIVE: CASE EVENT DATE: 20210727
